FAERS Safety Report 17113700 (Version 3)
Quarter: 2019Q4

REPORT INFORMATION
  Report Type: Spontaneous
  Country: CN (occurrence: CN)
  Receive Date: 20191205
  Receipt Date: 20191216
  Transmission Date: 20200122
  Serious: Yes (Death, Hospitalization)
  Sender: FDA-Public Use
  Company Number: CN-JNJFOC-20191202269

PATIENT
  Age: 9 Month
  Sex: Male

DRUGS (1)
  1. MOTRIN INFANTS [Suspect]
     Active Substance: IBUPROFEN
     Indication: PYREXIA
     Dosage: 1.25ML/PER TIME
     Route: 065

REACTIONS (7)
  - Septic shock [Fatal]
  - Pulmonary haemorrhage [Fatal]
  - Multiple organ dysfunction syndrome [Fatal]
  - Pleural effusion [Fatal]
  - Drug hypersensitivity [Fatal]
  - Pneumonia [Fatal]
  - Liver injury [Fatal]

NARRATIVE: CASE EVENT DATE: 201812
